FAERS Safety Report 24317950 (Version 2)
Quarter: 2024Q4

REPORT INFORMATION
  Report Type: Report from Study
  Country: US (occurrence: US)
  Receive Date: 20240913
  Receipt Date: 20241107
  Transmission Date: 20250115
  Serious: Yes (Death)
  Sender: SANOFI AVENTIS
  Company Number: US-SANOFI-02137691

PATIENT
  Age: 89 Year
  Sex: Male
  Weight: 217 kg

DRUGS (1)
  1. INSULIN GLARGINE [Suspect]
     Active Substance: INSULIN GLARGINE
     Indication: Type 1 diabetes mellitus
     Dosage: 22 IU, QD
     Route: 058
     Dates: start: 2023, end: 20240404

REACTIONS (2)
  - Injury [Fatal]
  - Fall [Unknown]

NARRATIVE: CASE EVENT DATE: 20240101
